FAERS Safety Report 5191819-0 (Version None)
Quarter: 2006Q4

REPORT INFORMATION
  Report Type: 
  Country: None (occurrence: None)
  Receive Date: 20061227
  Receipt Date: 20050425
  Transmission Date: 20070319
  Serious: Yes (Other)
  Sender: FDA-Public Use
  Company Number: 2005CG00822

PATIENT
  Age: 16111 Day
  Sex: Female

DRUGS (13)
  1. IRESSA [Suspect]
     Indication: LUNG ADENOCARCINOMA STAGE III
     Route: 048
     Dates: start: 20050304, end: 20050420
  2. NOCTAMIDE [Concomitant]
     Indication: INSOMNIA
     Route: 048
     Dates: start: 20050101
  3. TRISEQUENS [Concomitant]
     Indication: MENOPAUSAL SYMPTOMS
     Route: 048
     Dates: start: 20050101
  4. MODANE [Concomitant]
     Indication: CONSTIPATION
     Route: 048
     Dates: start: 20050101, end: 20050101
  5. ORELOX [Concomitant]
     Indication: LARYNGITIS
     Route: 048
     Dates: start: 20050318, end: 20050322
  6. EUPHON [Concomitant]
     Indication: LARYNGITIS
     Route: 048
     Dates: start: 20050318, end: 20050322
  7. EUPHON [Concomitant]
     Indication: INFLUENZA
     Route: 048
     Dates: start: 20050318, end: 20050322
  8. EUPHON [Concomitant]
     Route: 048
     Dates: start: 20050328, end: 20050402
  9. EUPHON [Concomitant]
     Route: 048
     Dates: start: 20050328, end: 20050402
  10. CIBLOR [Concomitant]
     Indication: INFLUENZA
     Route: 048
     Dates: start: 20050328, end: 20050402
  11. DAFALGAN [Concomitant]
     Indication: INFLUENZA
     Route: 048
     Dates: start: 20050328, end: 20050401
  12. CISPLATIN [Concomitant]
     Indication: LUNG ADENOCARCINOMA STAGE III
     Route: 042
     Dates: start: 20040602, end: 20040722
  13. NAVELBINE [Concomitant]
     Indication: LUNG ADENOCARCINOMA STAGE III
     Route: 042
     Dates: start: 20040602, end: 20040722

REACTIONS (5)
  - INTERSTITIAL LUNG DISEASE [None]
  - LUNG ADENOCARCINOMA METASTATIC [None]
  - MALIGNANT NEOPLASM PROGRESSION [None]
  - RECALL PHENOMENON [None]
  - RESPIRATORY ARREST [None]
